FAERS Safety Report 19962112 (Version 1)
Quarter: 2021Q4

REPORT INFORMATION
  Report Type: Report from Study
  Country: DE (occurrence: DE)
  Receive Date: 20211018
  Receipt Date: 20211018
  Transmission Date: 20220303
  Serious: Yes (Other)
  Sender: FDA-Public Use
  Company Number: DE-SA-SAC20210924001311

PATIENT
  Age: 53 Year
  Sex: Male

DRUGS (23)
  1. MOZOBIL [Suspect]
     Active Substance: PLERIXAFOR
     Indication: Plasma cell myeloma
     Dosage: 1 MG, QD
     Route: 058
     Dates: start: 20200916, end: 20200916
  2. NOVALGIN (METAMIZOLE SODIUM) [Suspect]
     Active Substance: METAMIZOLE SODIUM
     Indication: Prophylaxis
     Dosage: 1 G, QID
     Route: 048
     Dates: start: 20200416, end: 20200824
  3. OMEPRAZOLE [Concomitant]
     Active Substance: OMEPRAZOLE
     Indication: Prophylaxis
     Dosage: 40 MG, QD
     Route: 048
     Dates: start: 20200826, end: 20210502
  4. ZOMETA [Concomitant]
     Active Substance: ZOLEDRONIC ACID
     Indication: Prophylaxis
     Dosage: 4 MG, Q4W
     Route: 042
     Dates: start: 20200417, end: 20210223
  5. ACYCLOVIR [Concomitant]
     Active Substance: ACYCLOVIR
     Indication: Prophylaxis
     Dosage: 400 MG, BID
     Route: 048
     Dates: start: 20200418, end: 20210502
  6. TAVORA [Concomitant]
     Indication: Sleep disorder
  7. TAZOBAC [TAZOBACTAM] [Concomitant]
     Indication: Adverse event
     Dosage: 4.5 MG, TID
     Route: 048
     Dates: start: 20201026, end: 20201103
  8. NALOXONE HYDROCHLORIDE\OXYCODONE HYDROCHLORIDE [Concomitant]
     Active Substance: NALOXONE HYDROCHLORIDE\OXYCODONE HYDROCHLORIDE
     Indication: Adverse event
     Dosage: 10 MG, BID
     Route: 048
     Dates: start: 20200416, end: 20200824
  9. NALOXONE HYDROCHLORIDE\OXYCODONE HYDROCHLORIDE [Concomitant]
     Active Substance: NALOXONE HYDROCHLORIDE\OXYCODONE HYDROCHLORIDE
     Dosage: 10 MG, QD
     Route: 048
     Dates: start: 20200825
  10. PANTOPRAZOLE SODIUM [Concomitant]
     Active Substance: PANTOPRAZOLE SODIUM
     Indication: Prophylaxis
     Dosage: 40 MG, BID
     Route: 048
     Dates: start: 20200418, end: 20200824
  11. METHOCARBAMOL [Concomitant]
     Active Substance: METHOCARBAMOL
     Indication: Prophylaxis
     Dosage: 1500 MG, TID
     Route: 048
     Dates: start: 20200416, end: 20200824
  12. METHOCARBAMOL [Concomitant]
     Active Substance: METHOCARBAMOL
     Dosage: 750 MG, QD
     Route: 048
     Dates: start: 20200416, end: 20210502
  13. METHOCARBAMOL [Concomitant]
     Active Substance: METHOCARBAMOL
     Dosage: 750 MG, QD
     Route: 048
     Dates: start: 20210503
  14. GLANDOMED [Concomitant]
     Indication: Prophylaxis
     Dosage: UNK UNK, QID
     Route: 062
     Dates: start: 20200914, end: 20210502
  15. EPOETIN ALFA [Concomitant]
     Active Substance: ERYTHROPOIETIN
     Indication: Prophylaxis
     Dosage: 4000 IU, QW
     Route: 058
     Dates: start: 20200421, end: 20201103
  16. CIPROFLOXACIN HYDROCHLORIDE [Concomitant]
     Active Substance: CIPROFLOXACIN HYDROCHLORIDE
     Indication: Prophylaxis
     Dosage: 500 MG, BID
     Route: 048
     Dates: start: 20200418, end: 20201028
  17. ASPIRIN [Concomitant]
     Active Substance: ASPIRIN
     Indication: Prophylaxis
     Dosage: 100 MG, QD
     Route: 048
     Dates: start: 20200418
  18. AMPHO-MORONAL [Concomitant]
     Active Substance: AMPHOTERICIN B
     Indication: Prophylaxis
     Route: 048
     Dates: start: 20200914, end: 20210502
  19. CLINDAMYCIN [Concomitant]
     Active Substance: CLINDAMYCIN
     Indication: Adverse event
     Dosage: 600 MG, TID
     Route: 042
     Dates: start: 20210311, end: 20210314
  20. TAVOR (LORAZEPAM) [Concomitant]
     Active Substance: LORAZEPAM
     Indication: Adverse event
     Dosage: 1 MG, QD
     Route: 048
     Dates: start: 20200903, end: 20200908
  21. OXYCODONE [Concomitant]
     Active Substance: OXYCODONE
     Indication: Prophylaxis
     Dosage: 5 MG
     Route: 048
     Dates: start: 20200418, end: 20200420
  22. SULFAMETHOXAZOLE\TRIMETHOPRIM [Concomitant]
     Active Substance: SULFAMETHOXAZOLE\TRIMETHOPRIM
     Indication: Prophylaxis
     Dosage: 1920 MG, QW
     Route: 048
     Dates: start: 20200920
  23. EPOETIN DELTA [Concomitant]
     Active Substance: EPOETIN DELTA
     Dosage: 40000 IU, QW

REACTIONS (2)
  - Thrombocytopenia [Recovered/Resolved]
  - Sleep disorder [Recovered/Resolved]

NARRATIVE: CASE EVENT DATE: 20210310
